FAERS Safety Report 6260554-X (Version None)
Quarter: 2009Q3

REPORT INFORMATION
  Report Type: 
  Country: None (occurrence: None)
  Receive Date: 20090708
  Receipt Date: 20090704
  Transmission Date: 20100115
  Serious: Yes (Death)
  Sender: FDA-Public Use
  Company Number: PHHY2009MX27340

PATIENT
  Age: 71 Year
  Sex: Female

DRUGS (2)
  1. DIOVAN HCT [Suspect]
     Indication: HYPERTENSION
     Dosage: 1 TABLETS/DAY
     Route: 048
  2. DIOVAN HCT [Suspect]
     Dosage: 2 DF/DAY
     Route: 048
     Dates: end: 20090501

REACTIONS (1)
  - RESPIRATORY ARREST [None]
